FAERS Safety Report 24874562 (Version 1)
Quarter: 2025Q1

REPORT INFORMATION
  Report Type: Spontaneous
  Country: US (occurrence: US)
  Receive Date: 20250122
  Receipt Date: 20250122
  Transmission Date: 20250409
  Serious: No
  Sender: BAYER HEALTHCARE PHARMACEUTICALS INC.
  Company Number: US-BAYER-2025A006353

PATIENT
  Sex: Female
  Weight: 72 kg

DRUGS (21)
  1. BETASERON [Suspect]
     Active Substance: INTERFERON BETA-1B
     Indication: Multiple sclerosis
  2. KESIMPTA [Suspect]
     Active Substance: OFATUMUMAB
  3. GILENYA [Concomitant]
     Active Substance: FINGOLIMOD HYDROCHLORIDE
  4. AUBAGIO [Concomitant]
     Active Substance: TERIFLUNOMIDE
  5. BENZTROPINE [Concomitant]
     Active Substance: BENZTROPINE
     Dosage: 1 MG, QD
     Dates: start: 20241022, end: 20250119
  6. DIVALPROEX SODIUM [Concomitant]
     Active Substance: DIVALPROEX SODIUM
     Dates: start: 20241022, end: 20250119
  7. DIVALPROEX SODIUM [Concomitant]
     Active Substance: DIVALPROEX SODIUM
     Dates: start: 20241022, end: 20250119
  8. LEVOTHYROXINE [Concomitant]
     Active Substance: LEVOTHYROXINE
     Dates: start: 20241022, end: 20250119
  9. METFORMIN [Concomitant]
     Active Substance: METFORMIN HYDROCHLORIDE
     Dates: start: 20241022, end: 20250119
  10. PANTOPRAZOLE [Concomitant]
     Active Substance: PANTOPRAZOLE
     Dates: start: 20241022, end: 20250119
  11. QUETIAPINE [Concomitant]
     Active Substance: QUETIAPINE
     Dates: start: 20241022, end: 20241027
  12. SERTRALINE [Concomitant]
     Active Substance: SERTRALINE HYDROCHLORIDE
     Dates: start: 20241022, end: 20241027
  13. TRAZODONE [Concomitant]
     Active Substance: TRAZODONE HYDROCHLORIDE
     Dates: start: 20241022, end: 20241027
  14. ELIQUIS [Concomitant]
     Active Substance: APIXABAN
     Dates: start: 20241022, end: 20250119
  15. INVEGA [Concomitant]
     Active Substance: PALIPERIDONE
     Dates: start: 20241022, end: 20250119
  16. LISINOPRIL [Concomitant]
     Active Substance: LISINOPRIL
     Dates: start: 20241022, end: 20250119
  17. METOPROLOL TARTRATE [Concomitant]
     Active Substance: METOPROLOL TARTRATE
     Dates: start: 20241022, end: 20250119
  18. PREDNISOLONE ACETATE [Concomitant]
     Active Substance: PREDNISOLONE ACETATE
     Dates: start: 20241022, end: 20250119
  19. CYCLOBENZAPRINE [Concomitant]
     Active Substance: CYCLOBENZAPRINE
     Dates: start: 20241022, end: 20250119
  20. IRON [Concomitant]
     Active Substance: IRON
     Dates: start: 20241022, end: 20250119
  21. VITAMIN D3 [Concomitant]
     Active Substance: CHOLECALCIFEROL
     Dates: start: 20241022

REACTIONS (2)
  - Influenza like illness [None]
  - Drug ineffective [None]
